FAERS Safety Report 24270178 (Version 1)
Quarter: 2024Q3

REPORT INFORMATION
  Report Type: Spontaneous
  Country: FR (occurrence: FR)
  Receive Date: 20240830
  Receipt Date: 20240830
  Transmission Date: 20241017
  Serious: Yes (Life-Threatening, Hospitalization)
  Sender: ELI LILLY AND CO
  Company Number: None

PATIENT
  Age: 74 Year
  Sex: Male
  Weight: 65 kg

DRUGS (2)
  1. OLUMIANT [Suspect]
     Active Substance: BARICITINIB
     Indication: Dermatitis atopic
     Dosage: 2 MG, DAILY
     Route: 048
     Dates: start: 20211221, end: 202312
  2. OLUMIANT [Suspect]
     Active Substance: BARICITINIB
     Dosage: UNK UNK, UNKNOWN
     Route: 065

REACTIONS (2)
  - Disease recurrence [Not Recovered/Not Resolved]
  - Dermatofibrosarcoma protuberans [Recovered/Resolved]

NARRATIVE: CASE EVENT DATE: 20230209
